FAERS Safety Report 5158022-1 (Version None)
Quarter: 2006Q4

REPORT INFORMATION
  Report Type: 
  Country: None (occurrence: None)
  Receive Date: 20061116
  Receipt Date: 20061103
  Transmission Date: 20070319
  Serious: Yes (Death, Hospitalization, Other)
  Sender: FDA-Public Use
  Company Number: 2006135610

PATIENT
  Age: 87 Year
  Sex: Male

DRUGS (4)
  1. GABAPENTIN [Suspect]
     Indication: NEURALGIA
     Dosage: ORAL
     Route: 048
  2. GLICLAZIDE                    (GLICLAZIDE) [Concomitant]
  3. FORMOTEROL                             (FORMOTEROL) [Concomitant]
  4. CORTICOSTEROIDS [Concomitant]

REACTIONS (3)
  - ASTHMATIC CRISIS [None]
  - DYSKINESIA [None]
  - LOCKED-IN SYNDROME [None]
